FAERS Safety Report 6584122-5 (Version None)
Quarter: 2010Q1

REPORT INFORMATION
  Report Type: 
  Country: None (occurrence: None)
  Receive Date: 20100216
  Receipt Date: 20100212
  Transmission Date: 20100710
  Serious: Yes (Life-Threatening)
  Sender: FDA-Public Use
  Company Number: FR-JNJFOC-20100205701

PATIENT
  Age: 63 Year
  Sex: Male

DRUGS (3)
  1. DURAGESIC-100 [Suspect]
     Indication: PAIN
     Route: 062
  2. GEMCITABINE [Concomitant]
     Indication: CHEMOTHERAPY
     Route: 065
  3. MASITINIB (CHEMOTHERAPY) [Concomitant]
     Indication: CHEMOTHERAPY
     Route: 065

REACTIONS (4)
  - ALTERED STATE OF CONSCIOUSNESS [None]
  - BRADYPNOEA [None]
  - OVERDOSE [None]
  - RENAL FAILURE CHRONIC [None]
